FAERS Safety Report 25318578 (Version 1)
Quarter: 2025Q2

REPORT INFORMATION
  Report Type: Spontaneous
  Country: GB (occurrence: GB)
  Receive Date: 20250515
  Receipt Date: 20250515
  Transmission Date: 20250717
  Serious: Yes (Other)
  Sender: ABBVIE
  Company Number: None

PATIENT
  Age: 32 Year
  Sex: Female
  Weight: 49 kg

DRUGS (1)
  1. BOTOX [Suspect]
     Active Substance: ONABOTULINUMTOXINA
     Indication: Adverse drug reaction
     Route: 065
     Dates: start: 20250318, end: 20250318

REACTIONS (11)
  - Medication error [Unknown]
  - Diabetes mellitus inadequate control [Recovering/Resolving]
  - Dizziness [Not Recovered/Not Resolved]
  - Dizziness [Recovering/Resolving]
  - Palpitations [Not Recovered/Not Resolved]
  - Visual impairment [Recovered/Resolved with Sequelae]
  - Injection site bruising [Unknown]
  - Injection site haematoma [Unknown]
  - Botulism [Not Recovered/Not Resolved]
  - Visual impairment [Not Recovered/Not Resolved]
  - Panic attack [Not Recovered/Not Resolved]

NARRATIVE: CASE EVENT DATE: 20250318
